FAERS Safety Report 6907272-X (Version None)
Quarter: 2010Q3

REPORT INFORMATION
  Report Type: 
  Country: None (occurrence: None)
  Receive Date: 20100730
  Receipt Date: 20100719
  Transmission Date: 20110219
  Serious: Yes (Hospitalization)
  Sender: FDA-Public Use
  Company Number: 230431J10USA

PATIENT
  Age: 38 Year
  Sex: Female

DRUGS (1)
  1. REBIF [Suspect]
     Indication: MULTIPLE SCLEROSIS
     Dosage: 22 MCG, 3 IN 1  WK, SUBCUTANEOUS
     Route: 058
     Dates: start: 20080301, end: 20090701

REACTIONS (5)
  - CERVICAL DYSPLASIA [None]
  - CONDITION AGGRAVATED [None]
  - GASTRIC INFECTION [None]
  - INFLUENZA LIKE ILLNESS [None]
  - POST PROCEDURAL INFECTION [None]
